FAERS Safety Report 9955043 (Version 1)
Quarter: 2014Q1

REPORT INFORMATION
  Report Type: Spontaneous
  Country: US (occurrence: US)
  Receive Date: 20140304
  Receipt Date: 20140304
  Transmission Date: 20141002
  Serious: No
  Sender: FDA-Public Use
  Company Number: US-SUCAMPO PHARMA AMERICAS, INC-SPI201400150

PATIENT
  Age: 46 Year
  Sex: Female
  Weight: 65 kg

DRUGS (4)
  1. AMITIZA [Suspect]
     Indication: CONSTIPATION
     Dosage: 8 MCG, BID
     Route: 048
     Dates: start: 20140118, end: 20140121
  2. AMITIZA [Suspect]
     Dosage: 16 MCG (TWO 8 MCG CAPSULES) BID
     Route: 048
     Dates: start: 20140121, end: 20140128
  3. UNKNOWN [Concomitant]
     Indication: ARTERIOSPASM CORONARY
     Dosage: UNK
  4. MULTIPLE MEDICATIONS [Concomitant]
     Dosage: UNK

REACTIONS (2)
  - Chest pain [Recovered/Resolved]
  - Drug ineffective [Not Recovered/Not Resolved]
